FAERS Safety Report 9274586 (Version 1)
Quarter: 2013Q2

REPORT INFORMATION
  Report Type: Spontaneous
  Country: US (occurrence: US)
  Receive Date: 20130507
  Receipt Date: 20130507
  Transmission Date: 20140414
  Serious: Yes (Hospitalization)
  Sender: FDA-Public Use
  Company Number: US-ROCHE-1221752

PATIENT
  Sex: 0

DRUGS (1)
  1. ZELBORAF [Suspect]
     Indication: THYROID CANCER
     Route: 065

REACTIONS (3)
  - Hypercalcaemia [Unknown]
  - Pain [Unknown]
  - Dysphagia [Unknown]
